FAERS Safety Report 15844680 (Version 7)
Quarter: 2019Q2

REPORT INFORMATION
  Report Type: Spontaneous
  Country: PL (occurrence: PL)
  Receive Date: 20190118
  Receipt Date: 20190410
  Transmission Date: 20190711
  Serious: Yes (Death, Life-Threatening, Hospitalization, Other)
  Sender: FDA-Public Use
  Company Number: PL-PFIZER INC-2019022781

PATIENT
  Age: 31 Year
  Sex: Male

DRUGS (21)
  1. GANCICLOVIR. [Suspect]
     Active Substance: GANCICLOVIR
     Dosage: 6 MG/KG, 2X/DAY
     Route: 042
  2. GANCICLOVIR. [Suspect]
     Active Substance: GANCICLOVIR
     Dosage: 10 MG/KG, 2X/DAY
     Route: 042
  3. TRIMETHOPRIM SULFAMETHOXAZOLE [Suspect]
     Active Substance: SULFAMETHOXAZOLE\TRIMETHOPRIM
     Indication: CYTOMEGALOVIRUS INFECTION
     Dosage: 1140 MG, 3X/DAY
  4. GANCICLOVIR. [Suspect]
     Active Substance: GANCICLOVIR
     Indication: ANTIVIRAL PROPHYLAXIS
     Dosage: 5 MG/KG, 2X/DAY
     Route: 042
  5. METHYLPREDNISOLONE SODIUM SUCCINATE. [Suspect]
     Active Substance: METHYLPREDNISOLONE SODIUM SUCCINATE
     Indication: IMMUNOSUPPRESSION
     Dosage: 120 MG, UNK
  6. MEROPENEM. [Suspect]
     Active Substance: MEROPENEM
     Indication: INFLAMMATORY MARKER INCREASED
  7. LINEZOLID. [Suspect]
     Active Substance: LINEZOLID
     Indication: SUPERINFECTION BACTERIAL
     Dosage: 300 MG, 2X/DAY
  8. GANCICLOVIR. [Suspect]
     Active Substance: GANCICLOVIR
     Dosage: 5 MG/KG, 2X/DAY
     Route: 042
  9. TRIMETHOPRIM SULFAMETHOXAZOLE [Suspect]
     Active Substance: SULFAMETHOXAZOLE\TRIMETHOPRIM
     Indication: PULMONARY FIBROSIS
  10. MEROPENEM. [Suspect]
     Active Substance: MEROPENEM
     Indication: CYTOMEGALOVIRUS INFECTION
     Dosage: UNK
  11. FOSCARNET [Suspect]
     Active Substance: FOSCARNET
     Indication: CYTOMEGALOVIRUS INFECTION
     Dosage: 60 MG/KG, 2X/DAY
  12. FOSCARNET [Suspect]
     Active Substance: FOSCARNET
     Dosage: 60 MG/KG, 3X/DAY
  13. COLISTIN [Suspect]
     Active Substance: COLISTIN
     Indication: SUPERINFECTION BACTERIAL
     Dosage: NEBULIZED COLISTIN INHALATION
     Route: 055
  14. PREDNISONE. [Suspect]
     Active Substance: PREDNISONE
     Indication: TRANSPLANT REJECTION
     Dosage: 30 MG, UNK
  15. TRIMETHOPRIM SULFAMETHOXAZOLE [Suspect]
     Active Substance: SULFAMETHOXAZOLE\TRIMETHOPRIM
     Indication: INFLAMMATORY MARKER INCREASED
  16. MEROPENEM. [Suspect]
     Active Substance: MEROPENEM
     Indication: PULMONARY FIBROSIS
  17. MYCOPHENOLATE MOFETIL. [Suspect]
     Active Substance: MYCOPHENOLATE MOFETIL
     Indication: TRANSPLANT REJECTION
     Dosage: 3 G, 1X/DAY
  18. MYCOPHENOLATE MOFETIL. [Suspect]
     Active Substance: MYCOPHENOLATE MOFETIL
     Indication: IMMUNOSUPPRESSION
  19. PREDNISONE. [Suspect]
     Active Substance: PREDNISONE
     Indication: IMMUNOSUPPRESSION
  20. TACROLIMUS. [Suspect]
     Active Substance: TACROLIMUS
     Indication: IMMUNOSUPPRESSION
     Dosage: UNK
  21. COLISTIN [Suspect]
     Active Substance: COLISTIN
     Dosage: 3 MILLION IU, 3X/DAY
     Route: 042

REACTIONS (5)
  - Condition aggravated [Fatal]
  - Drug ineffective [Fatal]
  - Pancytopenia [Fatal]
  - Inflammatory marker increased [Fatal]
  - Dyspnoea at rest [Fatal]
